FAERS Safety Report 9383530 (Version 1)
Quarter: 2013Q3

REPORT INFORMATION
  Report Type: Spontaneous
  Country: US (occurrence: US)
  Receive Date: 20130704
  Receipt Date: 20130704
  Transmission Date: 20140515
  Serious: No
  Sender: FDA-Public Use
  Company Number: US-PFIZER INC-2013195650

PATIENT
  Sex: Male

DRUGS (2)
  1. AZITHROMYCIN [Suspect]
     Indication: EAR INFECTION
     Dosage: 4 ML, 1X/DAY FOR ONE DAY
     Dates: start: 20130628, end: 20130628
  2. AZITHROMYCIN [Suspect]
     Indication: BODY TEMPERATURE INCREASED
     Dosage: 2 ML, 1X/DAY
     Dates: start: 20130629

REACTIONS (1)
  - Drug ineffective [Unknown]
